FAERS Safety Report 9220961 (Version 2)
Quarter: 2013Q2

REPORT INFORMATION
  Report Type: Spontaneous
  Country: GB (occurrence: GB)
  Receive Date: 20130409
  Receipt Date: 20130510
  Transmission Date: 20140414
  Serious: Yes (Other)
  Sender: FDA-Public Use
  Company Number: GB-TEVA-396368ISR

PATIENT
  Age: 54 Year
  Sex: Female

DRUGS (15)
  1. SERTRALINE [Suspect]
     Indication: ANXIETY
     Dosage: DOSAGE FORM: UNSPECIFIED
     Route: 065
     Dates: start: 20120315, end: 20120413
  2. CITALOPRAM [Suspect]
     Indication: PRODUCT USED FOR UNKNOWN INDICATION
     Dosage: DOSAGE FORM: UNSPECIFIED
     Route: 065
  3. EVOREL SEQUI [Suspect]
     Indication: MENOPAUSAL SYMPTOMS
     Route: 062
     Dates: start: 20120321, end: 20120716
  4. EVOREL SEQUI [Suspect]
     Indication: MENOPAUSAL SYMPTOMS
     Route: 062
     Dates: start: 201202, end: 201204
  5. EVOREL SEQUI [Suspect]
     Indication: MENOPAUSAL SYMPTOMS
     Route: 062
     Dates: start: 2012, end: 20120820
  6. EVOREL SEQUI [Suspect]
     Indication: HORMONE REPLACEMENT THERAPY
     Route: 062
     Dates: start: 20120321, end: 20120716
  7. EVOREL SEQUI [Suspect]
     Indication: HORMONE REPLACEMENT THERAPY
     Route: 062
     Dates: start: 201202, end: 201204
  8. EVOREL SEQUI [Suspect]
     Indication: HORMONE REPLACEMENT THERAPY
     Route: 062
     Dates: start: 2012, end: 20120820
  9. FEMOSTON [Suspect]
     Indication: HORMONE REPLACEMENT THERAPY
     Dosage: DOSAGE FORM: TABLETS
     Route: 065
     Dates: start: 2012, end: 20120820
  10. KLIOFEM [Suspect]
     Indication: MENOPAUSE
     Dosage: DOSAGE FORM: UNSPECIFIED
     Route: 065
     Dates: start: 201204, end: 20120515
  11. KLIOFEM [Suspect]
     Indication: HORMONE REPLACEMENT THERAPY
     Dosage: DOSAGE FORM: UNSPECIFIED
     Route: 065
     Dates: start: 201204, end: 20120515
  12. ZOPICLONE [Concomitant]
     Indication: INSOMNIA
     Dosage: DOSAGE FORM: UNSPECIFIED, 3.75 TO 7.5 MG AT NIGHT
     Route: 065
     Dates: start: 20120330
  13. MIRTAZAPINE [Concomitant]
     Indication: ANXIETY
     Dosage: DOSAGE FORM: UNSPECIFIED, 15 MG TO 30 MG
     Route: 065
     Dates: start: 20120731, end: 20121008
  14. MIRTAZAPINE [Concomitant]
     Indication: DEPRESSION
     Dosage: DOSAGE FORM: UNSPECIFIED, 15 MG TO 30 MG
     Route: 065
     Dates: start: 20120731, end: 20121008
  15. AMITRIPTYLINE [Concomitant]
     Indication: PAIN
     Dosage: DOSAGE FORM: UNSPECIFIED, 10-50 MG AT NIGHT
     Route: 065
     Dates: start: 20120628, end: 20121010

REACTIONS (14)
  - Nerve injury [Recovering/Resolving]
  - Neuralgia [Recovering/Resolving]
  - Headache [Recovering/Resolving]
  - Toothache [Not Recovered/Not Resolved]
  - Oral pain [Not Recovered/Not Resolved]
  - Anxiety [Recovering/Resolving]
  - Vomiting [Recovering/Resolving]
  - Hypoaesthesia oral [Recovering/Resolving]
  - Hearing impaired [Recovering/Resolving]
  - Otorrhoea [Recovering/Resolving]
  - Pain [Recovering/Resolving]
  - Hypersensitivity [Recovering/Resolving]
  - Pruritus [Not Recovered/Not Resolved]
  - Pain of skin [Not Recovered/Not Resolved]
